FAERS Safety Report 17983933 (Version 1)
Quarter: 2020Q3

REPORT INFORMATION
  Report Type: Spontaneous
  Country: US (occurrence: US)
  Receive Date: 20200706
  Receipt Date: 20200706
  Transmission Date: 20201103
  Serious: Yes (Disabling)
  Sender: FDA-Public Use
  Company Number: None

PATIENT
  Age: 56 Year
  Sex: Male
  Weight: 85.5 kg

DRUGS (15)
  1. VENTOLIN [Concomitant]
     Active Substance: ALBUTEROL SULFATE
  2. MELOXICAN [Concomitant]
     Active Substance: MELOXICAM
  3. DIVALPROEX [Concomitant]
     Active Substance: DIVALPROEX SODIUM
  4. ALGININE [Concomitant]
  5. FISH OIL [Concomitant]
     Active Substance: FISH OIL
  6. GLUTAMINE [Concomitant]
     Active Substance: GLUTAMINE
  7. MAGNESIUM [Concomitant]
     Active Substance: MAGNESIUM
  8. SYMBICORT [Concomitant]
     Active Substance: BUDESONIDE\FORMOTEROL FUMARATE DIHYDRATE
  9. COQ10 [Concomitant]
     Active Substance: UBIDECARENONE
  10. AJOVY [Suspect]
     Active Substance: FREMANEZUMAB-VFRM
     Indication: MIGRAINE
     Dosage: ?          OTHER FREQUENCY:1 SHOT ADMINISTERE;?
     Route: 030
  11. VITAMIN D [Concomitant]
     Active Substance: VITAMIN D NOS
  12. SELENIUM [Concomitant]
     Active Substance: SELENIUM
  13. VITAMIN C [Concomitant]
     Active Substance: ASCORBIC ACID
  14. CALCIUM [Concomitant]
     Active Substance: CALCIUM
  15. VITAMIN B COMPLEX [Concomitant]
     Active Substance: CYANOCOBALAMIN\DEXPANTHENOL\NIACINAMIDE\PYRIDOXINE HYDROCHLORIDE\RIBOFLAVIN 5^-PHOSPHATE SODIUM\THIAMINE HYDROCHLORIDE\VITAMIN B COMPLEX

REACTIONS (1)
  - Alopecia [None]

NARRATIVE: CASE EVENT DATE: 20200405
